FAERS Safety Report 7792180-5 (Version None)
Quarter: 2011Q4

REPORT INFORMATION
  Report Type: 
  Country: None (occurrence: None)
  Receive Date: 20111003
  Receipt Date: 20111003
  Transmission Date: 20120403
  Serious: Yes (Life-Threatening)
  Sender: FDA-Public Use
  Company Number: None

PATIENT
  Sex: Male
  Weight: 74.842 kg

DRUGS (1)
  1. TRILEPTAL [Suspect]
     Indication: EPILEPSY
     Dosage: I DON'T KNOW.
     Route: 048
     Dates: start: 20040701, end: 20060901

REACTIONS (7)
  - ROAD TRAFFIC ACCIDENT [None]
  - LOWER LIMB FRACTURE [None]
  - INCORRECT DOSE ADMINISTERED [None]
  - CONVULSION [None]
  - CONCUSSION [None]
  - DRUG PRESCRIBING ERROR [None]
  - DIZZINESS [None]
